FAERS Safety Report 17075559 (Version 3)
Quarter: 2020Q2

REPORT INFORMATION
  Report Type: Spontaneous
  Country: US (occurrence: US)
  Receive Date: 20191126
  Receipt Date: 20200602
  Transmission Date: 20200713
  Serious: No
  Sender: FDA-Public Use
  Company Number: US-PFIZER INC-2019262434

PATIENT
  Age: 75 Year
  Sex: Female
  Weight: 70 kg

DRUGS (5)
  1. IBRANCE [Suspect]
     Active Substance: PALBOCICLIB
     Indication: NEOPLASM MALIGNANT
     Dosage: 125 MG, CYCLIC (21 DAYS THEN OFF FOR 7 DAYS)
     Route: 048
     Dates: start: 201804
  2. ASTRAZOL [Concomitant]
     Indication: BREAST CANCER METASTATIC
     Dosage: 1 MG, UNK
     Route: 048
     Dates: start: 201804
  3. ANASTROZOLE. [Concomitant]
     Active Substance: ANASTROZOLE
     Indication: AROMATASE INHIBITION THERAPY
     Dosage: 1 MG, 1X/DAY
     Route: 048
  4. XGEVA [Concomitant]
     Active Substance: DENOSUMAB
     Indication: BONE DENSITY ABNORMAL
     Dosage: UNK, MONTHLY (ONCE A MONTH SHOT)
  5. IBRANCE [Suspect]
     Active Substance: PALBOCICLIB
     Indication: BREAST CANCER RECURRENT

REACTIONS (5)
  - Fatigue [Unknown]
  - Influenza [Recovering/Resolving]
  - Abdominal discomfort [Recovering/Resolving]
  - Weight increased [Unknown]
  - Onychomycosis [Not Recovered/Not Resolved]

NARRATIVE: CASE EVENT DATE: 20200106
